FAERS Safety Report 11907264 (Version 1)
Quarter: 2016Q1

REPORT INFORMATION
  Report Type: Report from Study
  Country: DE (occurrence: CO)
  Receive Date: 20160111
  Receipt Date: 20160111
  Transmission Date: 20160526
  Serious: Yes (Death, Hospitalization)
  Sender: FDA-Public Use
  Company Number: DE-ACTELION-A-NJ2016-129776

PATIENT
  Age: 66 Year
  Sex: Female

DRUGS (1)
  1. VENTAVIS [Suspect]
     Active Substance: ILOPROST
     Indication: PULMONARY ARTERIAL HYPERTENSION
     Dosage: 6 DF, QD
     Route: 055
     Dates: start: 20150218, end: 20150901

REACTIONS (4)
  - Cardiac arrest [Fatal]
  - Dyspnoea [Unknown]
  - Asphyxia [Unknown]
  - Chest pain [Unknown]

NARRATIVE: CASE EVENT DATE: 20151214
